FAERS Safety Report 4864846-8 (Version None)
Quarter: 2005Q4

REPORT INFORMATION
  Report Type: 
  Country: None (occurrence: None)
  Receive Date: 20051201
  Receipt Date: 20050716
  Transmission Date: 20060501
  Serious: No
  Sender: FDA-Public Use
  Company Number: 2005PV000463

PATIENT
  Age: 69 Year
  Sex: Female
  Weight: 140.1615 kg

DRUGS (13)
  1. BYETTA [Suspect]
     Indication: DIABETES MELLITUS NON-INSULIN-DEPENDENT
     Dosage: 5 MCG;BID;SC
     Route: 058
     Dates: start: 20050712
  2. NEXIUM [Concomitant]
  3. LANTUS [Concomitant]
  4. ACTOS [Concomitant]
  5. DIOVAN HCT [Concomitant]
  6. ASPIRIN [Concomitant]
  7. CHROMIUM PICOLINATE [Concomitant]
  8. METAMUCIL-2 [Concomitant]
  9. DILTIAZEM HCL [Concomitant]
  10. OSCAL 500-D [Concomitant]
  11. ZOCOR [Concomitant]
  12. GLUCOSAMINE [Concomitant]
  13. DULCOLAX [Concomitant]

REACTIONS (2)
  - DECREASED APPETITE [None]
  - INFREQUENT BOWEL MOVEMENTS [None]
